FAERS Safety Report 5907185-6 (Version None)
Quarter: 2008Q3

REPORT INFORMATION
  Report Type: 
  Country: None (occurrence: None)
  Receive Date: 20080929
  Receipt Date: 20080925
  Transmission Date: 20090109
  Serious: No
  Sender: FDA-Public Use
  Company Number: 004572

PATIENT
  Sex: Female

DRUGS (1)
  1. BUSULFEX [Suspect]
     Indication: STEM CELL TRANSPLANT
     Dosage: INTRAVENOUS
     Route: 042

REACTIONS (3)
  - BLOOD BILIRUBIN INCREASED [None]
  - VENOOCCLUSIVE DISEASE [None]
  - WEIGHT INCREASED [None]
